FAERS Safety Report 15396576 (Version 1)
Quarter: 2018Q3

REPORT INFORMATION
  Report Type: Other
  Country: US (occurrence: US)
  Receive Date: 20180918
  Receipt Date: 20180918
  Transmission Date: 20181010
  Serious: No
  Sender: FDA-Public Use
  Company Number: US-LEADIANT BIOSCIENCES INC-2018STPI000174

PATIENT
  Sex: Female

DRUGS (16)
  1. ZYRTEC [Concomitant]
     Active Substance: CETIRIZINE HYDROCHLORIDE
  2. VITAMINS WITH MINERALS [Concomitant]
     Active Substance: MINERALS\VITAMINS
  3. FLONASE                            /00908302/ [Concomitant]
     Active Substance: MOMETASONE FUROATE
  4. ASPIRIN                            /00002701/ [Concomitant]
     Active Substance: ASPIRIN
  5. VALACYCLOVIR                       /01269701/ [Concomitant]
     Active Substance: VALACYCLOVIR HYDROCHLORIDE
  6. ZOCOR [Concomitant]
     Active Substance: SIMVASTATIN
  7. RANITIDINE. [Concomitant]
     Active Substance: RANITIDINE
  8. MATULANE [Suspect]
     Active Substance: PROCARBAZINE HYDROCHLORIDE
     Indication: BRAIN NEOPLASM MALIGNANT
     Dosage: 50 MG, QD FROM DAYS 6 TO11 THEN 100MG QD 12 TO 21 DAYS
     Route: 048
     Dates: start: 20171028
  9. CALCIUM D                          /00944201/ [Concomitant]
     Active Substance: CALCIUM CARBONATE\CHOLECALCIFEROL
  10. SMZ?TMP [Concomitant]
     Active Substance: SULFAMETHOXAZOLE\TRIMETHOPRIM
  11. GLEOSTINE [Concomitant]
     Active Substance: LOMUSTINE
  12. GINGER ROOT                        /01646602/ [Concomitant]
  13. PROAIR HFA [Concomitant]
     Active Substance: ALBUTEROL SULFATE
  14. VITAMIN B [Concomitant]
     Active Substance: VITAMIN B
  15. SINGULAIR [Suspect]
     Active Substance: MONTELUKAST SODIUM
  16. MEGESTROL [Concomitant]
     Active Substance: MEGESTROL

REACTIONS (4)
  - Dysphemia [Unknown]
  - Eye movement disorder [Unknown]
  - Feeling abnormal [Unknown]
  - Nausea [Unknown]
